FAERS Safety Report 16598637 (Version 4)
Quarter: 2022Q3

REPORT INFORMATION
  Report Type: Spontaneous
  Country: GR (occurrence: GR)
  Receive Date: 20190719
  Receipt Date: 20220920
  Transmission Date: 20221027
  Serious: Yes (Death, Life-Threatening, Other)
  Sender: FDA-Public Use
  Company Number: GR-ACCORD-137176

PATIENT
  Age: 73 Year
  Sex: Female

DRUGS (2)
  1. GEMCITABINE HYDROCHLORIDE [Suspect]
     Active Substance: GEMCITABINE HYDROCHLORIDE
     Indication: Follicular dendritic cell sarcoma
     Dosage: UNK, UNKNOWN
     Route: 042
  2. PREDNISONE [Suspect]
     Active Substance: PREDNISONE
     Indication: Follicular dendritic cell sarcoma
     Dosage: UNK, UNKNOWN
     Route: 065

REACTIONS (5)
  - Death [Fatal]
  - Paraneoplastic pemphigus [Unknown]
  - Corneal perforation [Recovered/Resolved]
  - Visual impairment [Unknown]
  - Off label use [Unknown]
